FAERS Safety Report 23056835 (Version 2)
Quarter: 2023Q4

REPORT INFORMATION
  Report Type: Spontaneous
  Country: NL (occurrence: NL)
  Receive Date: 20231012
  Receipt Date: 20231030
  Transmission Date: 20240110
  Serious: Yes (Other)
  Sender: FDA-Public Use
  Company Number: None

PATIENT
  Age: 76 Year
  Sex: Female
  Weight: 67 kg

DRUGS (1)
  1. CIPROFLOXACIN [Suspect]
     Active Substance: CIPROFLOXACIN
     Indication: Urinary tract infection
     Dosage: 1000 MILLIGRAM DAILY; 1 PIECE TWICE A DAY , CIPROFLOXACINE TABLET 500MG / BRAND NAME NOT SPECIFIED
     Dates: start: 20230828, end: 20230829

REACTIONS (2)
  - Cerebral amyloid angiopathy [Recovered/Resolved]
  - Condition aggravated [Recovered/Resolved]
